FAERS Safety Report 5036637-9 (Version None)
Quarter: 2006Q2

REPORT INFORMATION
  Report Type: 
  Country: None (occurrence: None)
  Receive Date: 20060601
  Receipt Date: 20060407
  Transmission Date: 20061013
  Serious: No
  Sender: FDA-Public Use
  Company Number: US200604001448

PATIENT
  Sex: Female

DRUGS (2)
  1. CYBALTA [Suspect]
     Indication: DEPRESSION
     Dosage: 60 MG ORAL
     Route: 048
     Dates: start: 20060101
  2. PROZAC [Suspect]
     Indication: AGGRESSION
     Dosage: SEE IMAGE
     Route: 048
     Dates: start: 20030201

REACTIONS (5)
  - AGITATION [None]
  - ANGER [None]
  - HYPERHIDROSIS [None]
  - WEIGHT ABNORMAL [None]
  - WEIGHT INCREASED [None]
